FAERS Safety Report 18512369 (Version 1)
Quarter: 2020Q4

REPORT INFORMATION
  Report Type: Spontaneous
  Country: DE (occurrence: DE)
  Receive Date: 20201117
  Receipt Date: 20201117
  Transmission Date: 20210114
  Serious: Yes (Hospitalization, Other)
  Sender: FDA-Public Use
  Company Number: DE-SA-2020SA320294

PATIENT

DRUGS (2)
  1. ELOXATIN [Suspect]
     Active Substance: OXALIPLATIN
     Indication: PANCREATIC CARCINOMA
     Dosage: 150 MG, QOW (85 MG/M2 } 150 MG Q2W } 3. ADMINISTRATION AS PART OF THE M-FOLFIRINOX SCHEME)
     Route: 042
     Dates: start: 20201002, end: 20201103
  2. ATROPIN [ATROPINE SULFATE] [Concomitant]
     Indication: PREMEDICATION
     Dosage: UNK
     Route: 065
     Dates: start: 20201103

REACTIONS (3)
  - Hypersensitivity [Recovering/Resolving]
  - Bronchial obstruction [Recovering/Resolving]
  - Dyspnoea [Recovering/Resolving]

NARRATIVE: CASE EVENT DATE: 20201103
